FAERS Safety Report 19425449 (Version 1)
Quarter: 2021Q2

REPORT INFORMATION
  Report Type: Spontaneous
  Country: US (occurrence: US)
  Receive Date: 20210617
  Receipt Date: 20210617
  Transmission Date: 20210717
  Serious: Yes (Other)
  Sender: FDA-Public Use
  Company Number: US-AUROBINDO-AUR-APL-2021-024923

PATIENT
  Age: 12 Year
  Sex: Female

DRUGS (4)
  1. DORNASE ALFA. [Concomitant]
     Active Substance: DORNASE ALFA
     Indication: PRODUCT USED FOR UNKNOWN INDICATION
     Dosage: UNK
     Route: 065
  2. IBUPROFEN. [Suspect]
     Active Substance: IBUPROFEN
     Indication: CYSTIC FIBROSIS
     Dosage: 1000 MILLIGRAM, TWO TIMES A DAY
     Route: 065
  3. MULTIVITAMIN [Concomitant]
     Active Substance: VITAMINS
     Indication: PRODUCT USED FOR UNKNOWN INDICATION
     Dosage: UNK
     Route: 065
  4. PANCRELIPASE. [Concomitant]
     Active Substance: PANCRELIPASE
     Indication: PRODUCT USED FOR UNKNOWN INDICATION
     Dosage: UNK
     Route: 065

REACTIONS (6)
  - Intestinal stenosis [Recovered/Resolved]
  - Vomiting [Recovered/Resolved]
  - Pyloric stenosis [Recovered/Resolved]
  - Weight decreased [Recovered/Resolved]
  - Peptic ulcer [Recovered/Resolved]
  - Product use in unapproved indication [Recovered/Resolved]
